FAERS Safety Report 18184854 (Version 1)
Quarter: 2020Q3

REPORT INFORMATION
  Report Type: Spontaneous
  Country: FR (occurrence: FR)
  Receive Date: 20200824
  Receipt Date: 20200824
  Transmission Date: 20201103
  Serious: Yes (Hospitalization, Other)
  Sender: FDA-Public Use
  Company Number: FR-SA-2020SA219841

PATIENT

DRUGS (9)
  1. BISOPROLOL HEMIFUMARATE [Suspect]
     Active Substance: BISOPROLOL FUMARATE
     Indication: ATRIAL FIBRILLATION
     Dosage: 5 MG, QD
     Route: 048
     Dates: end: 20190628
  2. STAGID [Suspect]
     Active Substance: METFORMIN PAMOATE
     Indication: DIABETES MELLITUS
     Dosage: 1 DF, QD
     Route: 048
     Dates: end: 20190628
  3. KARDEGIC [Suspect]
     Active Substance: ASPIRIN DL-LYSINE
     Indication: MYOCARDIAL ISCHAEMIA
     Dosage: 1 DF, QD
     Route: 048
     Dates: start: 201202, end: 20190628
  4. SITAGLIPTIN [Suspect]
     Active Substance: SITAGLIPTIN
     Indication: DIABETES MELLITUS
     Dosage: 1 DF, QD
     Route: 048
     Dates: end: 20190628
  5. OFEV [Suspect]
     Active Substance: NINTEDANIB
     Indication: PULMONARY FIBROSIS
     Dosage: 1 DF, QD
     Route: 048
     Dates: start: 201704
  6. FUROSEMIDE. [Suspect]
     Active Substance: FUROSEMIDE
     Indication: MYOCARDIAL ISCHAEMIA
     Dosage: 20 MG, QD
     Route: 048
     Dates: end: 20190628
  7. COAPROVEL [Suspect]
     Active Substance: HYDROCHLOROTHIAZIDE\IRBESARTAN
     Indication: HYPERTENSION
     Dosage: 1 DF, QD
     Route: 048
     Dates: end: 20190628
  8. RIVAROXABAN [Suspect]
     Active Substance: RIVAROXABAN
     Indication: ATRIAL FIBRILLATION
     Dosage: 1 DF, QD
     Route: 048
     Dates: start: 201806, end: 20190628
  9. DIAMICRON [Concomitant]
     Active Substance: GLICLAZIDE
     Route: 065

REACTIONS (3)
  - Anaemia [Recovered/Resolved]
  - Melaena [Recovered/Resolved]
  - Duodenitis [Recovered/Resolved]

NARRATIVE: CASE EVENT DATE: 201906
